FAERS Safety Report 6135522-9 (Version None)
Quarter: 2009Q1

REPORT INFORMATION
  Report Type: 
  Country: None (occurrence: None)
  Receive Date: 20090327
  Receipt Date: 20090320
  Transmission Date: 20090719
  Serious: Yes (Hospitalization)
  Sender: FDA-Public Use
  Company Number: B0566003A

PATIENT
  Age: 30 Year
  Sex: Male

DRUGS (5)
  1. ENGERIX-B [Suspect]
     Indication: PROPHYLAXIS
     Dosage: 20MCG SINGLE DOSE
     Route: 065
     Dates: start: 20090126, end: 20090126
  2. BECLOMETHASONE DIPROPIONATE [Suspect]
     Indication: ASTHMA
     Route: 055
  3. SALBUTAMOL SULPHATE [Suspect]
     Indication: ASTHMA
     Route: 055
  4. ENGERIX-B [Concomitant]
     Dosage: 20MCG SINGLE DOSE
     Route: 030
     Dates: start: 20090119, end: 20090119
  5. BECLOMETASONE [Concomitant]

REACTIONS (1)
  - CEREBROVASCULAR ACCIDENT [None]
